FAERS Safety Report 4581356-6 (Version None)
Quarter: 2005Q1

REPORT INFORMATION
  Report Type: 
  Country: None (occurrence: None)
  Receive Date: 20050127
  Receipt Date: 20040823
  Transmission Date: 20050727
  Serious: No
  Sender: FDA-Public Use
  Company Number: USA040876210

PATIENT
  Age: 52 Year
  Sex: Female

DRUGS (8)
  1. STRATTERA [Suspect]
     Indication: ATTENTION DEFICIT/HYPERACTIVITY DISORDER
     Dosage: 25 MG DAY
     Dates: start: 20040819
  2. VIOXX [Concomitant]
  3. WELLBUTRIN [Concomitant]
  4. ATIVAN [Concomitant]
  5. SEROQUEL [Concomitant]
  6. TRAZODONE (TRAZODONE) [Concomitant]
  7. VISTARIL [Concomitant]
  8. LAMICTAL [Concomitant]

REACTIONS (4)
  - ASTHENIA [None]
  - DIZZINESS [None]
  - HEADACHE [None]
  - NAUSEA [None]
